FAERS Safety Report 10240744 (Version 2)
Quarter: 2014Q2

REPORT INFORMATION
  Report Type: Spontaneous
  Country: TR (occurrence: TR)
  Receive Date: 20140617
  Receipt Date: 20140617
  Transmission Date: 20141212
  Serious: Yes (Death, Life-Threatening, Other)
  Sender: FDA-Public Use
  Company Number: TR-ROCHE-1410875

PATIENT
  Age: 76 Year
  Sex: Female
  Weight: 69.05 kg

DRUGS (1)
  1. XOLAIR [Suspect]
     Indication: ASTHMA
     Route: 058
     Dates: start: 20060911, end: 20130601

REACTIONS (2)
  - Brain neoplasm [Fatal]
  - Allergic granulomatous angiitis [Recovered/Resolved]
